FAERS Safety Report 5140685-8 (Version None)
Quarter: 2006Q4

REPORT INFORMATION
  Report Type: 
  Country: None (occurrence: None)
  Receive Date: 20061025
  Receipt Date: 20061009
  Transmission Date: 20070319
  Serious: Yes (Other)
  Sender: FDA-Public Use
  Company Number: 8018515

PATIENT
  Age: 33 Year
  Sex: Female

DRUGS (3)
  1. PREDNISOLONE [Suspect]
  2. ACTOS [Suspect]
  3. NPH INSULIN [Concomitant]

REACTIONS (4)
  - ANEURYSM [None]
  - INFLAMMATION [None]
  - MACULAR OEDEMA [None]
  - RETINAL EXUDATES [None]
